FAERS Safety Report 7317100-9 (Version None)
Quarter: 2011Q1

REPORT INFORMATION
  Report Type: 
  Country: None (occurrence: None)
  Receive Date: 20110226
  Receipt Date: 20100924
  Transmission Date: 20110831
  Serious: No
  Sender: FDA-Public Use
  Company Number: US-ALLERGAN-1012414US

PATIENT
  Sex: Female

DRUGS (1)
  1. BOTOXA? [Suspect]
     Indication: PRODUCT USED FOR UNKNOWN INDICATION
     Dosage: UNK
     Dates: start: 20100924, end: 20100924

REACTIONS (2)
  - DYSPHAGIA [None]
  - FEELING ABNORMAL [None]
